FAERS Safety Report 7052483-9 (Version None)
Quarter: 2010Q4

REPORT INFORMATION
  Report Type: 
  Country: None (occurrence: None)
  Receive Date: 20101019
  Receipt Date: 20101014
  Transmission Date: 20110411
  Serious: Yes (Life-Threatening)
  Sender: FDA-Public Use
  Company Number: DE-PFIZER INC-2010130264

PATIENT
  Age: 31 Year
  Sex: Male
  Weight: 60 kg

DRUGS (5)
  1. AZITHROMYCIN [Suspect]
     Indication: PSEUDOMONAS INFECTION
     Dosage: 500 MG, UNK
     Route: 048
     Dates: start: 20100728, end: 20100805
  2. CEFTAZIDIME [Suspect]
     Dosage: 1 G, 3X/DAY
     Route: 042
     Dates: start: 20100728, end: 20100807
  3. FOSFOMYCIN [Suspect]
     Indication: PSEUDOMONAS INFECTION
     Dosage: 3 G, 3X/DAY
     Route: 042
     Dates: start: 20100728, end: 20100805
  4. COLISTIN [Concomitant]
     Indication: PSEUDOMONAS INFECTION
     Dosage: 1000000 IU, 3X/DAY
     Route: 042
     Dates: start: 20100805, end: 20100807
  5. CIPROFLOXACIN [Concomitant]
     Indication: PSEUDOMONAS INFECTION
     Dosage: 750 MG, 3X/DAY
     Route: 048
     Dates: start: 20100805, end: 20100807

REACTIONS (3)
  - HEPATIC ENZYME INCREASED [None]
  - HEPATIC FAILURE [None]
  - INTERNATIONAL NORMALISED RATIO INCREASED [None]
